FAERS Safety Report 4445610-0 (Version None)
Quarter: 2004Q3

REPORT INFORMATION
  Report Type: 
  Country: None (occurrence: None)
  Receive Date: 20040902
  Receipt Date: 20040818
  Transmission Date: 20050211
  Serious: Yes (Hospitalization)
  Sender: FDA-Public Use
  Company Number: F04200400237

PATIENT
  Age: 95 Year
  Sex: Female

DRUGS (6)
  1. ARIXTRA [Suspect]
     Indication: HIP ARTHROPLASTY
     Dosage: 2.5 MG OD , SUBCUTANEOUS
     Route: 058
     Dates: start: 20030407, end: 20030101
  2. ARIXTRA [Suspect]
     Indication: THROMBOSIS PROPHYLAXIS
     Dosage: 2.5 MG OD , SUBCUTANEOUS
     Route: 058
     Dates: start: 20030407, end: 20030101
  3. VIOXX(REFECOXIB) [Concomitant]
  4. AQUAPHOR (XIPAMIDE) [Concomitant]
  5. ISOKET RETARD (ISOSORBIDE DINITRATE) [Concomitant]
  6. ENALAPRIL MALEATE [Concomitant]

REACTIONS (1)
  - GASTROINTESTINAL HAEMORRHAGE [None]
